FAERS Safety Report 4987611-X (Version None)
Quarter: 2006Q2

REPORT INFORMATION
  Report Type: 
  Country: None (occurrence: None)
  Receive Date: 20060428
  Receipt Date: 20060428
  Transmission Date: 20061013
  Serious: Yes (Hospitalization)
  Sender: FDA-Public Use
  Company Number: None

PATIENT
  Age: 27 Year
  Sex: Female
  Weight: 57 kg

DRUGS (1)
  1. ORTHO EVRA [Suspect]
     Indication: CONTRACEPTION
     Dosage: Q WEEK  TRANSDERMAL
     Route: 062
     Dates: start: 20060401, end: 20060422

REACTIONS (2)
  - CEREBELLAR INFARCTION [None]
  - ISCHAEMIA [None]
